FAERS Safety Report 6735545-2 (Version None)
Quarter: 2010Q2

REPORT INFORMATION
  Report Type: 
  Country: None (occurrence: None)
  Receive Date: 20100521
  Receipt Date: 20100513
  Transmission Date: 20101027
  Serious: Yes (Death)
  Sender: FDA-Public Use
  Company Number: GB-TEVA-234627ISR

PATIENT
  Age: 31 Year
  Sex: Female

DRUGS (4)
  1. DIAZEPAM [Suspect]
     Indication: SUICIDE ATTEMPT
  2. TEMAZEPAM [Suspect]
     Indication: SUICIDE ATTEMPT
  3. ZOPICLONE [Suspect]
     Indication: SUICIDE ATTEMPT
  4. MORPHINE [Suspect]
     Indication: SUICIDE ATTEMPT

REACTIONS (1)
  - DRUG TOXICITY [None]
